FAERS Safety Report 6835884-0 (Version None)
Quarter: 2010Q3

REPORT INFORMATION
  Report Type: 
  Country: None (occurrence: None)
  Receive Date: 20100713
  Receipt Date: 20100706
  Transmission Date: 20110219
  Serious: Yes (Other)
  Sender: FDA-Public Use
  Company Number: US-SANOFI-AVENTIS-2010SA039282

PATIENT
  Age: 67 Year
  Sex: Female

DRUGS (4)
  1. LANTUS [Suspect]
     Indication: TYPE 2 DIABETES MELLITUS
     Dosage: DOSE:32 UNIT(S)
     Route: 058
  2. LANTUS [Suspect]
     Route: 058
     Dates: start: 20050101
  3. OPTICLICK [Suspect]
     Indication: TYPE 2 DIABETES MELLITUS
     Dates: start: 20050101
  4. GLUCOTROL XL [Concomitant]

REACTIONS (2)
  - EYE HAEMORRHAGE [None]
  - INJECTION SITE PAIN [None]
